FAERS Safety Report 8837507 (Version 1)
Quarter: 2012Q4

REPORT INFORMATION
  Report Type: 
  Country: DE (occurrence: DE)
  Receive Date: 20121012
  Receipt Date: 20121012
  Transmission Date: 20130627
  Serious: Yes (Other)
  Sender: FDA-Public Use
  Company Number: DE-UCBSA-068546

PATIENT
  Age: 59 Year
  Sex: Male

DRUGS (8)
  1. KEPPRA [Suspect]
     Dosage: DAILY DOSE: 3500 MG
  2. KEPPRA [Suspect]
     Dosage: DAILY DOSE: 3000 MG
     Dates: start: 2003
  3. CARBAMAZEPINE [Concomitant]
     Dosage: DOSE: 1500
  4. PHENYTOIN [Concomitant]
     Dosage: DOSE: 350
  5. VALPROIC ACID [Concomitant]
     Dosage: DOSE: 1500MG/DAY
  6. VALPROIC ACID [Concomitant]
     Dosage: DAILY DOSE: 600 MG
  7. VALPROIC ACID [Concomitant]
     Dosage: EVENING
  8. LAMOTRIGINE [Concomitant]
     Dosage: DOSE: 25 MG

REACTIONS (3)
  - Road traffic accident [Recovered/Resolved]
  - Fatigue [Recovered/Resolved]
  - Overdose [Recovered/Resolved]
